FAERS Safety Report 7297277-4 (Version None)
Quarter: 2011Q1

REPORT INFORMATION
  Report Type: 
  Country: None (occurrence: None)
  Receive Date: 20110216
  Receipt Date: 20110209
  Transmission Date: 20110831
  Serious: Yes (Death)
  Sender: FDA-Public Use
  Company Number: PHEH2009US19055

PATIENT
  Sex: Male
  Weight: 92.971 kg

DRUGS (3)
  1. EXJADE [Suspect]
     Indication: MYELODYSPLASTIC SYNDROME
     Dosage: 750 MG DAILY
     Route: 048
     Dates: end: 20080909
  2. COUMADIN [Concomitant]
  3. EXJADE [Suspect]
     Route: 048

REACTIONS (8)
  - MALAISE [None]
  - ASTHENIA [None]
  - DIARRHOEA [None]
  - BLOOD ALKALINE PHOSPHATASE INCREASED [None]
  - PALLOR [None]
  - HAEMOGLOBIN DECREASED [None]
  - DEATH [None]
  - ASPARTATE AMINOTRANSFERASE INCREASED [None]
